FAERS Safety Report 24723179 (Version 1)
Quarter: 2024Q4

REPORT INFORMATION
  Report Type: Spontaneous
  Country: GB (occurrence: GB)
  Receive Date: 20241211
  Receipt Date: 20241211
  Transmission Date: 20250114
  Serious: Yes (Life-Threatening, Other)
  Sender: BAYER HEALTHCARE PHARMACEUTICALS INC.
  Company Number: None

PATIENT
  Age: 58 Year
  Sex: Female
  Weight: 35 kg

DRUGS (1)
  1. CIPROFLOXACIN [Suspect]
     Active Substance: CIPROFLOXACIN
     Indication: Pseudomonas infection
     Dosage: 15 ML, BID
     Dates: start: 20241207, end: 20241209

REACTIONS (3)
  - Medication error [Unknown]
  - Enteral nutrition [Not Recovered/Not Resolved]
  - Product administration error [None]

NARRATIVE: CASE EVENT DATE: 20241209
